FAERS Safety Report 12966205 (Version 2)
Quarter: 2016Q4

REPORT INFORMATION
  Report Type: Report from Study
  Country: US (occurrence: US)
  Receive Date: 20161122
  Receipt Date: 20161209
  Transmission Date: 20170207
  Serious: Yes (Death, Hospitalization)
  Sender: FDA-Public Use
  Company Number: US-ACTELION-A-NJ2016-144020

PATIENT
  Age: 72 Year
  Sex: Male

DRUGS (7)
  1. TUDORZA GENUAIR [Concomitant]
     Active Substance: ACLIDINIUM BROMIDE
     Dosage: 400 MCG, 1 PUFF, BID
     Route: 055
  2. OPSUMIT [Suspect]
     Active Substance: MACITENTAN
     Indication: PULMONARY ARTERIAL HYPERTENSION
     Dosage: 10 MG, QD
     Route: 048
     Dates: start: 20160721, end: 20161004
  3. SILDENAFIL. [Concomitant]
     Active Substance: SILDENAFIL
     Dosage: 40 MG, TID
  4. HUMALOG [Concomitant]
     Active Substance: INSULIN LISPRO
     Dosage: UNK
     Route: 058
  5. FUROSEMIDE. [Concomitant]
     Active Substance: FUROSEMIDE
     Dosage: 40 MG, QD
  6. ESOMEPRAZOLE MAGNESIUM. [Concomitant]
     Active Substance: ESOMEPRAZOLE MAGNESIUM
     Dosage: 20 MG, QD
  7. ALBUTEROL. [Concomitant]
     Active Substance: ALBUTEROL
     Dosage: 90 MCG, 2 PUFFS, QD
     Route: 055

REACTIONS (8)
  - Pulmonary arterial hypertension [Fatal]
  - Hypoxia [Unknown]
  - Oxygen saturation decreased [Unknown]
  - Status epilepticus [Unknown]
  - Drug ineffective for unapproved indication [Unknown]
  - Hypoglycaemia [Unknown]
  - Pulmonary veno-occlusive disease [Fatal]
  - Condition aggravated [Fatal]

NARRATIVE: CASE EVENT DATE: 20161003
